FAERS Safety Report 13203579 (Version 2)
Quarter: 2017Q1

REPORT INFORMATION
  Report Type: Spontaneous
  Country: US (occurrence: US)
  Receive Date: 20170209
  Receipt Date: 20170313
  Transmission Date: 20170428
  Serious: Yes (Other)
  Sender: FDA-Public Use
  Company Number: US-009507513-1702USA000373

PATIENT
  Age: 20 Year
  Sex: Female
  Weight: 77.55 kg

DRUGS (1)
  1. NEXPLANON [Suspect]
     Active Substance: ETONOGESTREL
     Indication: CONTRACEPTION
     Dosage: 1 IMPLANT ON LEFT ARM/ 3 YEAR
     Route: 059
     Dates: start: 2013, end: 201306

REACTIONS (5)
  - Unintended pregnancy [Recovered/Resolved]
  - Abortion induced [Unknown]
  - Pregnancy with implant contraceptive [Recovered/Resolved]
  - Implant site scar [Not Recovered/Not Resolved]
  - Stillbirth [Unknown]

NARRATIVE: CASE EVENT DATE: 2013
